FAERS Safety Report 4915008-7 (Version None)
Quarter: 2006Q1

REPORT INFORMATION
  Report Type: 
  Country: None (occurrence: None)
  Receive Date: 20060215
  Receipt Date: 20060215
  Transmission Date: 20060701
  Serious: Yes (Other)
  Sender: FDA-Public Use
  Company Number: None

PATIENT
  Age: 55 Year
  Sex: Female

DRUGS (2)
  1. ACTONEL [Suspect]
     Indication: BONE DISORDER
     Dosage: PREV Q WK NOW Q MOS PT INCONSISTANT  PO
  2. ACTONEL [Suspect]
     Indication: IMPAIRED HEALING
     Dosage: PREV Q WK NOW Q MOS PT INCONSISTANT  PO

REACTIONS (1)
  - OSTEONECROSIS [None]
